FAERS Safety Report 7214488-4 (Version None)
Quarter: 2011Q1

REPORT INFORMATION
  Report Type: 
  Country: None (occurrence: None)
  Receive Date: 20110107
  Receipt Date: 20101227
  Transmission Date: 20110831
  Serious: Yes (Other)
  Sender: FDA-Public Use
  Company Number: TR-NOVOPROD-306739

PATIENT
  Sex: Female
  Weight: 66 kg

DRUGS (3)
  1. INSULATARD HM PENFILL [Suspect]
     Indication: TYPE 2 DIABETES MELLITUS
     Dosage: 4 IU, QD
     Route: 058
     Dates: start: 20100325, end: 20100412
  2. KLEXANE [Concomitant]
     Dosage: 0.4 ML, UNK
     Route: 058
     Dates: start: 20100301, end: 20100401
  3. NOVORAPID FLEXPEN [Suspect]
     Indication: TYPE 2 DIABETES MELLITUS
     Dosage: 12 IU, QD
     Route: 058
     Dates: start: 20100325, end: 20100412

REACTIONS (4)
  - DRUG EXPOSURE DURING PREGNANCY [None]
  - INTRA-UTERINE DEATH [None]
  - PREMATURE RUPTURE OF MEMBRANES [None]
  - PLACENTAL DISORDER [None]
